FAERS Safety Report 5512706-1 (Version None)
Quarter: 2007Q4

REPORT INFORMATION
  Report Type: 
  Country: None (occurrence: None)
  Receive Date: 20071112
  Receipt Date: 20071105
  Transmission Date: 20080405
  Serious: Yes (Other)
  Sender: FDA-Public Use
  Company Number: US-ASTRAZENECA-2007UW25698

PATIENT
  Age: 82 Year
  Sex: Female
  Weight: 61.2 kg

DRUGS (5)
  1. NEXIUM [Suspect]
     Indication: OESOPHAGEAL DISORDER
     Route: 048
  2. NEXIUM [Suspect]
     Indication: INCREASED UPPER AIRWAY SECRETION
     Route: 048
  3. NEXIUM [Suspect]
     Indication: DYSPHAGIA
     Route: 048
  4. SOTALOL HYDROCHLORIDE [Concomitant]
  5. COUMADIN [Concomitant]

REACTIONS (2)
  - DIARRHOEA [None]
  - MYOCARDIAL INFARCTION [None]
